FAERS Safety Report 18160416 (Version 9)
Quarter: 2024Q2

REPORT INFORMATION
  Report Type: Spontaneous
  Country: US (occurrence: US)
  Receive Date: 20200817
  Receipt Date: 20240503
  Transmission Date: 20240716
  Serious: No
  Sender: FDA-Public Use
  Company Number: US-PFIZER INC-2020309755

PATIENT
  Age: 72 Year
  Sex: Female
  Weight: 47.6 kg

DRUGS (3)
  1. IBRANCE [Suspect]
     Active Substance: PALBOCICLIB
     Dosage: 125 MG
  2. IBRANCE [Suspect]
     Active Substance: PALBOCICLIB
     Dosage: 75 MG, CYCLIC (5 DAYS A WEEK FOR THREE WEEKS AND THEN OFF FOR A WEEK AND THEN START AGAIN)
     Route: 048
  3. IBRANCE [Suspect]
     Active Substance: PALBOCICLIB
     Dosage: 75 MG, CYCLIC (TAKE 1 (ONE) TABLET IN THE MORNING 3 WEEKS ON AND ONE WEEK OFF)
     Route: 048

REACTIONS (5)
  - Blood test abnormal [Unknown]
  - Back pain [Unknown]
  - Product storage error [Unknown]
  - Poor quality product administered [Unknown]
  - Off label use [Unknown]
